FAERS Safety Report 13296503 (Version 1)
Quarter: 2017Q1

REPORT INFORMATION
  Report Type: Other
  Country: CZ (occurrence: CZ)
  Receive Date: 20170305
  Receipt Date: 20170305
  Transmission Date: 20170428
  Serious: Yes (Hospitalization)
  Sender: FDA-Public Use
  Company Number: CZ-ORCHID HEALTHCARE-1063840

PATIENT
  Age: 17 Year
  Sex: Female

DRUGS (2)
  1. CLONAZEPAM. [Concomitant]
     Active Substance: CLONAZEPAM
     Route: 030
  2. OLANZAPINE. [Suspect]
     Active Substance: OLANZAPINE
     Indication: SCHIZOPHRENIA
     Route: 030

REACTIONS (3)
  - Lipase increased [Recovered/Resolved]
  - Amylase increased [Recovered/Resolved]
  - C-reactive protein increased [Recovered/Resolved]
